FAERS Safety Report 6684387-5 (Version None)
Quarter: 2010Q2

REPORT INFORMATION
  Report Type: 
  Country: None (occurrence: None)
  Receive Date: 20100416
  Receipt Date: 20100407
  Transmission Date: 20101027
  Serious: Yes (Other)
  Sender: FDA-Public Use
  Company Number: US-PFIZER INC-2010044768

PATIENT
  Sex: Female
  Weight: 59.864 kg

DRUGS (10)
  1. REVATIO [Suspect]
     Indication: RAYNAUD'S PHENOMENON
     Dosage: UNK
     Route: 048
     Dates: start: 20091001, end: 20100301
  2. REVATIO [Suspect]
     Indication: SCLERODERMA
  3. ZETIA [Concomitant]
     Dosage: UNK
  4. METHOTREXATE [Concomitant]
     Dosage: UNK
  5. FOLIC ACID [Concomitant]
     Dosage: UNK
  6. NEXIUM [Concomitant]
     Dosage: UNK, 2X/DAY
  7. CYCLOBENZAPRINE [Concomitant]
     Dosage: UNK
  8. ONDANSETRON [Concomitant]
     Dosage: UNK
  9. OXYCONTIN [Concomitant]
     Indication: PAIN
     Dosage: UNK
  10. NIFEDIPINE [Concomitant]
     Dosage: UNK

REACTIONS (5)
  - ASTHENIA [None]
  - LOCALISED INFECTION [None]
  - MALAISE [None]
  - OEDEMA PERIPHERAL [None]
  - SKIN DISCOLOURATION [None]
